FAERS Safety Report 8609461-5 (Version None)
Quarter: 2012Q3

REPORT INFORMATION
  Report Type: 
  Country: None (occurrence: None)
  Receive Date: 20120821
  Receipt Date: 20120814
  Transmission Date: 20120928
  Serious: Yes (Other)
  Sender: FDA-Public Use
  Company Number: DE-PFIZER INC-2012199256

PATIENT
  Age: 85 Year
  Sex: Male

DRUGS (1)
  1. LYRICA [Suspect]
     Indication: PAIN
     Dosage: UNK

REACTIONS (4)
  - NASAL DRYNESS [None]
  - SUDDEN ONSET OF SLEEP [None]
  - PERIPHERAL COLDNESS [None]
  - DIARRHOEA [None]
